FAERS Safety Report 5062310-7 (Version None)
Quarter: 2006Q3

REPORT INFORMATION
  Report Type: 
  Country: None (occurrence: None)
  Receive Date: 20060721
  Receipt Date: 20060705
  Transmission Date: 20061208
  Serious: Yes (Hospitalization)
  Sender: FDA-Public Use
  Company Number: FR200607000398

PATIENT
  Age: 83 Year
  Sex: Female

DRUGS (3)
  1. FORTEO [Suspect]
     Indication: OSTEOPOROSIS
     Dosage: 20 UG, DAILY (1/D), SUBCUTANEOUS
     Route: 058
     Dates: start: 20060518
  2. FORTEO [Concomitant]
  3. VENTOLIN [Concomitant]

REACTIONS (3)
  - ASTHMA [None]
  - CONDITION AGGRAVATED [None]
  - RESPIRATORY FAILURE [None]
